FAERS Safety Report 4911229-8 (Version None)
Quarter: 2006Q1

REPORT INFORMATION
  Report Type: 
  Country: None (occurrence: None)
  Receive Date: 20060209
  Receipt Date: 20060119
  Transmission Date: 20060701
  Serious: Yes (Hospitalization)
  Sender: FDA-Public Use
  Company Number: 380001M06SGP

PATIENT
  Age: 32 Year
  Sex: Female

DRUGS (1)
  1. CRINONE [Suspect]

REACTIONS (4)
  - DRUG EXPOSURE DURING PREGNANCY [None]
  - HAEMORRHAGE [None]
  - MUSCLE SPASMS [None]
  - POOR QUALITY DRUG ADMINISTERED [None]
